FAERS Safety Report 4604285-8 (Version None)
Quarter: 2005Q1

REPORT INFORMATION
  Report Type: 
  Country: None (occurrence: None)
  Receive Date: 20050308
  Receipt Date: 20050308
  Transmission Date: 20050727
  Serious: Yes (Hospitalization)
  Sender: FDA-Public Use
  Company Number: None

PATIENT
  Age: 78 Year
  Sex: Male
  Weight: 63.1 kg

DRUGS (3)
  1. CARBOPLATIN [Suspect]
     Indication: NON-SMALL CELL LUNG CANCER STAGE III
     Dosage: 425 MG IV
     Route: 042
  2. PACLITAXEL [Suspect]
     Dosage: 180 MG IV
     Route: 042
  3. EXTERNAL BEAM RADIATION [Concomitant]

REACTIONS (5)
  - DEHYDRATION [None]
  - DIZZINESS [None]
  - FALL [None]
  - NEUTROPENIA [None]
  - THROMBOCYTOPENIA [None]
